FAERS Safety Report 20638667 (Version 1)
Quarter: 2022Q1

REPORT INFORMATION
  Report Type: Report from Study
  Country: IT (occurrence: IT)
  Receive Date: 20220325
  Receipt Date: 20220325
  Transmission Date: 20220424
  Serious: Yes (Hospitalization)
  Sender: FDA-Public Use
  Company Number: None

PATIENT
  Age: 48 Year
  Sex: Female

DRUGS (3)
  1. MEDROL [Suspect]
     Active Substance: METHYLPREDNISOLONE
     Dosage: UNK
     Route: 048
  2. ETHINYL ESTRADIOL\GESTODENE [Concomitant]
     Active Substance: ETHINYL ESTRADIOL\GESTODENE
     Dosage: UNK
     Route: 048
  3. PALEXIA [Concomitant]
     Active Substance: TAPENTADOL HYDROCHLORIDE
     Dosage: UNK
     Route: 048

REACTIONS (1)
  - Lymphoedema [Recovering/Resolving]

NARRATIVE: CASE EVENT DATE: 20210911
